FAERS Safety Report 6031448-X (Version None)
Quarter: 2008Q4

REPORT INFORMATION
  Report Type: 
  Country: None (occurrence: None)
  Receive Date: 20081230
  Receipt Date: 20080603
  Transmission Date: 20090506
  Serious: Yes (Other)
  Sender: FDA-Public Use
  Company Number: TPH-00050

PATIENT
  Age: 19 Year
  Sex: Female

DRUGS (1)
  1. TRI-LEVLEN (UNK. STRENGTH; BAYER) [Suspect]
     Indication: CONTRACEPTION
     Dosage: 1 TABLET PER DAY
     Dates: start: 20060901, end: 20061201

REACTIONS (1)
  - THROMBOSIS [None]
